FAERS Safety Report 15657142 (Version 1)
Quarter: 2018Q4

REPORT INFORMATION
  Report Type: Spontaneous
  Country: GB (occurrence: GB)
  Receive Date: 20181126
  Receipt Date: 20181126
  Transmission Date: 20190205
  Serious: Yes (Hospitalization, Other)
  Sender: FDA-Public Use
  Company Number: GB-TEVA-2018-GB-978513

PATIENT
  Age: 40 Year
  Sex: Male

DRUGS (7)
  1. OLANZAPINE. [Suspect]
     Active Substance: OLANZAPINE
     Indication: PRODUCT USED FOR UNKNOWN INDICATION
     Route: 065
     Dates: start: 2018
  2. CLOZARIL [Suspect]
     Active Substance: CLOZAPINE
     Dosage: PM
     Route: 048
     Dates: start: 20180714
  3. CLOZARIL [Suspect]
     Active Substance: CLOZAPINE
     Route: 048
     Dates: start: 20070919, end: 20180713
  4. CLOZARIL [Suspect]
     Active Substance: CLOZAPINE
     Route: 048
     Dates: start: 20180713
  5. OLANZAPINE. [Suspect]
     Active Substance: OLANZAPINE
     Route: 065
     Dates: end: 2018
  6. CLOZARIL [Suspect]
     Active Substance: CLOZAPINE
     Indication: SCHIZOPHRENIA
     Dosage: 500 MILLIGRAM DAILY;
     Route: 065
     Dates: start: 20180723, end: 20180730
  7. CLOZARIL [Suspect]
     Active Substance: CLOZAPINE
     Dates: start: 201807

REACTIONS (14)
  - Hypoglycaemia [Unknown]
  - Lower limb fracture [Unknown]
  - Diabetes mellitus [Recovered/Resolved]
  - Malaise [Recovered/Resolved]
  - Mental impairment [Recovered/Resolved]
  - Constipation [Recovered/Resolved]
  - White blood cell count decreased [Recovered/Resolved]
  - Lower respiratory tract infection [Recovering/Resolving]
  - Neutropenia [Recovered/Resolved]
  - Haemoglobin decreased [Unknown]
  - Hyponatraemia [Recovered/Resolved]
  - Antipsychotic drug level increased [Recovered/Resolved]
  - Fall [Unknown]
  - Confusional state [Unknown]

NARRATIVE: CASE EVENT DATE: 2018
